FAERS Safety Report 5636386-X (Version None)
Quarter: 2008Q1

REPORT INFORMATION
  Report Type: 
  Country: None (occurrence: None)
  Receive Date: 20080225
  Receipt Date: 20071120
  Transmission Date: 20080703
  Serious: No
  Sender: FDA-Public Use
  Company Number: A0695389A

PATIENT
  Sex: Female

DRUGS (3)
  1. VERAMYST [Suspect]
     Route: 045
  2. ANTIDEPRESSANT [Concomitant]
  3. UNKNOWN MEDICATION [Concomitant]

REACTIONS (1)
  - SOMNOLENCE [None]
